FAERS Safety Report 12125572 (Version 2)
Quarter: 2016Q2

REPORT INFORMATION
  Report Type: Report from Study
  Country: US (occurrence: US)
  Receive Date: 20160229
  Receipt Date: 20160406
  Transmission Date: 20160815
  Serious: Yes (Other)
  Sender: FDA-Public Use
  Company Number: US-AMGEN-USASL2016023303

PATIENT
  Age: 70 Year
  Sex: Female

DRUGS (3)
  1. ENBREL [Suspect]
     Active Substance: ETANERCEPT
     Indication: RHEUMATOID ARTHRITIS
     Dosage: 50 MG, QWK
     Route: 065
  2. ENBREL [Suspect]
     Active Substance: ETANERCEPT
     Indication: ARTHRITIS
  3. ENBREL [Suspect]
     Active Substance: ETANERCEPT
     Indication: FIBROMYALGIA

REACTIONS (10)
  - Back pain [Unknown]
  - Contusion [Recovering/Resolving]
  - Abasia [Unknown]
  - Fall [Unknown]
  - Injury [Unknown]
  - Head injury [Unknown]
  - Memory impairment [Unknown]
  - Drug dose omission [Unknown]
  - Pain in extremity [Unknown]
  - Scab [Unknown]

NARRATIVE: CASE EVENT DATE: 2016
